FAERS Safety Report 9989662 (Version 1)
Quarter: 2014Q1

REPORT INFORMATION
  Report Type: Spontaneous
  Country: US (occurrence: None)
  Receive Date: 20140123
  Receipt Date: 20140123
  Transmission Date: 20141002
  Serious: Yes (Hospitalization)
  Sender: FDA-Public Use
  Company Number: UTC-039337

PATIENT
  Age: 35 Year
  Sex: Female
  Weight: 115.9 kg

DRUGS (1)
  1. REMODULIN [Suspect]
     Indication: COR PULMONALE CHRONIC
     Dosage: 27.36 UG/KG (0.019 UG/KG, 1 IN 1 MIN, SUBCUTANSOUS  THERAPY DATES 13/MAY/2013 ONGOING
     Route: 058
     Dates: start: 20130513

REACTIONS (1)
  - Dyspnoea [None]
